FAERS Safety Report 5274242-X (Version None)
Quarter: 2007Q1

REPORT INFORMATION
  Report Type: 
  Country: None (occurrence: None)
  Receive Date: 20070323
  Receipt Date: 20070313
  Transmission Date: 20070707
  Serious: Yes (Hospitalization)
  Sender: FDA-Public Use
  Company Number: US-JNJFOC-20070303682

PATIENT
  Sex: Female
  Weight: 54.43 kg

DRUGS (7)
  1. DURAGESIC-100 [Suspect]
     Indication: PAIN
     Route: 062
  2. PERCOCET [Concomitant]
     Indication: PAIN
     Dosage: 6/325
     Route: 048
  3. VALIUM [Concomitant]
     Indication: NERVOUSNESS
     Dosage: AS NEEDED
     Route: 048
  4. LIPITOR [Concomitant]
     Indication: BLOOD CHOLESTEROL
     Route: 048
  5. LASIX [Concomitant]
     Indication: SWELLING
     Route: 048
  6. K-TAB [Concomitant]
     Indication: BLOOD POTASSIUM
     Route: 048
  7. LORTAB [Concomitant]
     Indication: PAIN
     Route: 048

REACTIONS (6)
  - AUTOIMMUNE DISORDER [None]
  - DEPRESSION [None]
  - HYPERTENSION [None]
  - INSOMNIA [None]
  - PNEUMONIA [None]
  - WRONG TECHNIQUE IN DRUG USAGE PROCESS [None]
